FAERS Safety Report 6781806-0 (Version None)
Quarter: 2010Q2

REPORT INFORMATION
  Report Type: 
  Country: None (occurrence: None)
  Receive Date: 20100621
  Receipt Date: 20100611
  Transmission Date: 20101027
  Serious: Yes (Hospitalization, Other)
  Sender: FDA-Public Use
  Company Number: US-AMGEN-KDL418091

PATIENT
  Sex: Female

DRUGS (2)
  1. ENBREL [Suspect]
     Indication: RHEUMATOID ARTHRITIS
     Route: 058
  2. KETOPROFEN [Concomitant]

REACTIONS (11)
  - ABDOMINAL PAIN [None]
  - BALANCE DISORDER [None]
  - COLD SWEAT [None]
  - DIARRHOEA [None]
  - FALL [None]
  - GASTRITIS EROSIVE [None]
  - HEAD INJURY [None]
  - HIP FRACTURE [None]
  - HYPOTENSION [None]
  - LOSS OF CONSCIOUSNESS [None]
  - URINARY TRACT INFECTION [None]
